FAERS Safety Report 4346207-3 (Version None)
Quarter: 2004Q1

REPORT INFORMATION
  Report Type: 
  Country: None (occurrence: None)
  Receive Date: 20040325
  Receipt Date: 20040109
  Transmission Date: 20041129
  Serious: No
  Sender: FDA-Public Use
  Company Number: USA040156256

PATIENT
  Age: 82 Year
  Sex: Female
  Weight: 55 kg

DRUGS (4)
  1. FORTEO [Suspect]
     Indication: OSTEOPOROSIS
     Dates: start: 20040109
  2. FOSAMAX [Concomitant]
  3. CALCITONIN [Concomitant]
  4. CALCIUM WITH VITAMIN D [Concomitant]

REACTIONS (2)
  - INJECTION SITE ERYTHEMA [None]
  - OVERDOSE [None]
